FAERS Safety Report 20709874 (Version 7)
Quarter: 2022Q3

REPORT INFORMATION
  Report Type: Spontaneous
  Country: BR (occurrence: BR)
  Receive Date: 20220414
  Receipt Date: 20220919
  Transmission Date: 20221027
  Serious: Yes (Life-Threatening, Hospitalization, Other)
  Sender: FDA-Public Use
  Company Number: BR-PFIZER INC-202200070315

PATIENT
  Age: 66 Year
  Sex: Female

DRUGS (3)
  1. ALPRAZOLAM [Suspect]
     Active Substance: ALPRAZOLAM
     Indication: Anxiety
     Dosage: ONE PIECE IN THE MORNING, ONE PIECE IN THE AFTERNOON AND 2 MG AT NIGHT
     Dates: start: 2002
  2. ALPRAZOLAM [Suspect]
     Active Substance: ALPRAZOLAM
     Indication: Phobia
     Dosage: 2X/DAY
  3. ALPRAZOLAM [Suspect]
     Active Substance: ALPRAZOLAM
     Indication: Panic attack
     Dosage: DIVIDED THE TABLET INTO FOUR

REACTIONS (33)
  - Heart rate increased [Unknown]
  - Angina pectoris [Unknown]
  - Dengue fever [Unknown]
  - COVID-19 [Unknown]
  - Chikungunya virus infection [Unknown]
  - Asthenia [Unknown]
  - Drug dependence [Not Recovered/Not Resolved]
  - Anxiety [Not Recovered/Not Resolved]
  - Gait inability [Unknown]
  - Illness [Unknown]
  - Hypersensitivity [Unknown]
  - Pain [Unknown]
  - Mental disorder [Unknown]
  - Depression [Unknown]
  - Panic disorder [Unknown]
  - Presyncope [Unknown]
  - Confusional state [Unknown]
  - Nausea [Unknown]
  - Insomnia [Unknown]
  - Memory impairment [Unknown]
  - Nervousness [Not Recovered/Not Resolved]
  - Malaise [Unknown]
  - Loss of personal independence in daily activities [Unknown]
  - Disease recurrence [Unknown]
  - Asthma [Unknown]
  - Phobia [Unknown]
  - Allergic reaction to excipient [Unknown]
  - Feeling of despair [Unknown]
  - Mental disorder [Unknown]
  - Paranoia [Unknown]
  - Therapeutic response unexpected [Unknown]
  - Intentional product misuse [Unknown]
  - Underdose [Unknown]
